FAERS Safety Report 18251568 (Version 2)
Quarter: 2020Q4

REPORT INFORMATION
  Report Type: Spontaneous
  Country: BG (occurrence: BG)
  Receive Date: 20200910
  Receipt Date: 20201012
  Transmission Date: 20210113
  Serious: Yes (Hospitalization)
  Sender: FDA-Public Use
  Company Number: NVSC2020BG243999

PATIENT
  Age: 68 Year
  Sex: Male
  Weight: 67 kg

DRUGS (20)
  1. PACLITAXEL. [Suspect]
     Active Substance: PACLITAXEL
     Indication: PRODUCT USED FOR UNKNOWN INDICATION
     Dosage: UNK
     Route: 065
  2. ATEZOLIZUMAB. [Suspect]
     Active Substance: ATEZOLIZUMAB
     Indication: SMALL CELL LUNG CANCER
     Dosage: 1200 MG, TIW (NON STUDY DRUG RELATED AE: ANEMIA)
     Route: 041
     Dates: start: 20200803
  3. LACIDIPINE [Concomitant]
     Active Substance: LACIDIPINE
     Indication: HYPERTENSION
     Dosage: UNK
     Route: 065
     Dates: start: 201405
  4. LEVOTHYROXINE. [Concomitant]
     Active Substance: LEVOTHYROXINE
     Indication: HYPOTHYROIDISM
     Dosage: UNK
     Route: 065
     Dates: start: 201405
  5. TORASEMIDE [Concomitant]
     Active Substance: TORSEMIDE
     Indication: HYPERTENSION
     Dosage: UNK
     Route: 065
     Dates: start: 201405
  6. RAMIPRIL. [Concomitant]
     Active Substance: RAMIPRIL
     Indication: HYPERTENSION
     Dosage: UNK
     Route: 065
     Dates: start: 201405
  7. ROSUVASTATINE [Concomitant]
     Active Substance: ROSUVASTATIN
     Indication: HYPERLIPIDAEMIA
     Dosage: UNK
     Route: 065
     Dates: start: 201405
  8. ETOPOSIDE. [Suspect]
     Active Substance: ETOPOSIDE
     Indication: TRANSITIONAL CELL CARCINOMA
  9. CARBOPLATIN. [Suspect]
     Active Substance: CARBOPLATIN
     Indication: NON-SMALL CELL LUNG CANCER
     Dosage: UNK
     Route: 065
  10. ATEZOLIZUMAB. [Suspect]
     Active Substance: ATEZOLIZUMAB
     Indication: TRANSITIONAL CELL CARCINOMA
     Dosage: 1200 MG, TIW
     Route: 041
     Dates: start: 20200702
  11. ATEZOLIZUMAB. [Suspect]
     Active Substance: ATEZOLIZUMAB
     Indication: NON-SMALL CELL LUNG CANCER
     Dosage: 1200 MG, TIW (NON STUDY DRUG RELATED AE: ANEMIA)
     Route: 041
     Dates: start: 20200703
  12. ETOPOSIDE. [Suspect]
     Active Substance: ETOPOSIDE
     Indication: SMALL CELL LUNG CANCER
  13. ACETYLSALICYLIC ACID [Concomitant]
     Active Substance: ASPIRIN
     Indication: CARDIAC FAILURE
     Dosage: UNK
     Route: 065
     Dates: start: 201405
  14. CARBOPLATIN. [Suspect]
     Active Substance: CARBOPLATIN
     Indication: TRANSITIONAL CELL CARCINOMA
  15. CEFTRIAXONE. [Concomitant]
     Active Substance: CEFTRIAXONE
     Indication: NEUTROPENIA
     Dosage: UNK
     Route: 065
     Dates: start: 20200611, end: 20200616
  16. ETOPOSIDE. [Suspect]
     Active Substance: ETOPOSIDE
     Indication: NON-SMALL CELL LUNG CANCER
     Dosage: UNK
     Route: 065
  17. METHYLPREDNISOLONE. [Concomitant]
     Active Substance: METHYLPREDNISOLONE
     Indication: NEUTROPENIA
     Dosage: UNK
     Route: 065
     Dates: start: 20200611, end: 20200617
  18. CARBOPLATIN. [Suspect]
     Active Substance: CARBOPLATIN
     Indication: SMALL CELL LUNG CANCER
  19. FILGRASTIM [Concomitant]
     Active Substance: FILGRASTIM
     Indication: NEUTROPENIA
     Dosage: UNK
     Route: 065
     Dates: start: 20200611, end: 20200616
  20. BISOPROLOL FUMARATE. [Concomitant]
     Active Substance: BISOPROLOL FUMARATE
     Indication: HYPERTENSION
     Dosage: UNK
     Route: 065
     Dates: start: 201405

REACTIONS (1)
  - Pancytopenia [Recovered/Resolved]

NARRATIVE: CASE EVENT DATE: 20200817
